FAERS Safety Report 15871588 (Version 1)
Quarter: 2019Q1

REPORT INFORMATION
  Report Type: Spontaneous
  Country: US (occurrence: US)
  Receive Date: 20190126
  Receipt Date: 20190126
  Transmission Date: 20190417
  Serious: No
  Sender: FDA-Public Use
  Company Number: US-TEVA-2019-US-999532

PATIENT
  Sex: Female

DRUGS (1)
  1. FLUOCINONIDE OINTMENT [Suspect]
     Active Substance: FLUOCINONIDE
     Indication: STASIS DERMATITIS
     Route: 065
     Dates: start: 20190102

REACTIONS (2)
  - Application site pruritus [Unknown]
  - Nasopharyngitis [Unknown]

NARRATIVE: CASE EVENT DATE: 20190102
